FAERS Safety Report 5963740-9 (Version None)
Quarter: 2008Q4

REPORT INFORMATION
  Report Type: 
  Country: None (occurrence: None)
  Receive Date: 20081121
  Receipt Date: 20081121
  Transmission Date: 20090506
  Serious: Yes (Other)
  Sender: FDA-Public Use
  Company Number: None

PATIENT
  Sex: Female
  Weight: 68.9467 kg

DRUGS (2)
  1. LEVAQUIN [Suspect]
     Indication: SINUSITIS
     Dosage: 750MG 1 DAILY PO
     Route: 048
     Dates: start: 20080414, end: 20080424
  2. LEVAQUIN [Suspect]
     Indication: SINUSITIS
     Dosage: 500MG DAILY IV
     Route: 042
     Dates: start: 20081023, end: 20081026

REACTIONS (4)
  - ARTHRALGIA [None]
  - ERYTHEMA [None]
  - SINUSITIS [None]
  - TENDONITIS [None]
